FAERS Safety Report 4396159-5 (Version None)
Quarter: 2004Q3

REPORT INFORMATION
  Report Type: 
  Country: None (occurrence: None)
  Receive Date: 20040708
  Receipt Date: 20040625
  Transmission Date: 20050211
  Serious: Yes (Hospitalization)
  Sender: FDA-Public Use
  Company Number: 193233

PATIENT
  Age: 34 Year
  Sex: Female
  Weight: 131.9967 kg

DRUGS (7)
  1. AVONEX [Suspect]
     Indication: MULTIPLE SCLEROSIS
     Dosage: 30 MCG QW IM
     Route: 030
     Dates: start: 19970101, end: 20040101
  2. AVONEX [Suspect]
     Indication: MULTIPLE SCLEROSIS
     Dosage: 30 MCG QW IM
     Route: 030
     Dates: start: 20040101
  3. LORAZEPAM [Concomitant]
  4. EFFEXOR [Concomitant]
  5. ZOLOFT [Concomitant]
  6. SINEMET [Concomitant]
  7. PERCOCET [Concomitant]

REACTIONS (9)
  - ACQUIRED PYLORIC STENOSIS [None]
  - CONDITION AGGRAVATED [None]
  - GASTROOESOPHAGEAL REFLUX DISEASE [None]
  - HYPOTHYROIDISM [None]
  - INFLUENZA LIKE ILLNESS [None]
  - INITIAL INSOMNIA [None]
  - MULTIPLE SCLEROSIS [None]
  - VOMITING [None]
  - WEIGHT INCREASED [None]
